FAERS Safety Report 18713350 (Version 1)
Quarter: 2021Q1

REPORT INFORMATION
  Report Type: Spontaneous
  Country: US (occurrence: US)
  Receive Date: 20210107
  Receipt Date: 20210107
  Transmission Date: 20210419
  Serious: Yes (Other)
  Sender: FDA-Public Use
  Company Number: US-PFIZER INC-2020515307

PATIENT
  Age: 62 Year
  Sex: Male
  Weight: 91 kg

DRUGS (2)
  1. VANCOMYCIN HCL [Suspect]
     Active Substance: VANCOMYCIN HYDROCHLORIDE
     Dosage: 4 G (PASTE WAS APPLIED)
  2. VANCOMYCIN HCL [Suspect]
     Active Substance: VANCOMYCIN HYDROCHLORIDE
     Dosage: 1250 MG, 2X/DAY
     Route: 042

REACTIONS (2)
  - Nephropathy toxic [Recovered/Resolved]
  - Toxicity to various agents [Recovered/Resolved]
